FAERS Safety Report 23348779 (Version 1)
Quarter: 2023Q4

REPORT INFORMATION
  Report Type: Report from Study
  Country: PR (occurrence: PR)
  Receive Date: 20231229
  Receipt Date: 20231229
  Transmission Date: 20240109
  Serious: Yes (Hospitalization, Other)
  Sender: FDA-Public Use
  Company Number: PR-GILEAD-2023-0656538

PATIENT
  Age: 19 Year
  Sex: Male

DRUGS (1)
  1. AZTREONAM LYSINE [Suspect]
     Active Substance: AZTREONAM LYSINE
     Indication: Cystic fibrosis
     Dosage: 28 DAYS, THEN REST FOR 28 DAYS
     Route: 065
     Dates: start: 20200110

REACTIONS (1)
  - Pneumonia [Not Recovered/Not Resolved]
